FAERS Safety Report 4677708-6 (Version None)
Quarter: 2005Q2

REPORT INFORMATION
  Report Type: 
  Country: None (occurrence: None)
  Receive Date: 20050527
  Receipt Date: 20050519
  Transmission Date: 20051028
  Serious: Yes (Hospitalization, Other)
  Sender: FDA-Public Use
  Company Number: HQWYE792019MAY05

PATIENT
  Age: 34 Month
  Sex: Female

DRUGS (2)
  1. CHILDREN'S ADVIL [Suspect]
     Indication: PYREXIA
     Dosage: 100 MG 2X PER 1 DAY, ORAL
     Route: 048
     Dates: start: 20050328, end: 20050330
  2. ACETAMINOPHEN [Concomitant]

REACTIONS (12)
  - BACILLUS INFECTION [None]
  - BLOOD CULTURE POSITIVE [None]
  - CULTURE URINE POSITIVE [None]
  - EAR INFECTION [None]
  - HAEMATOCRIT DECREASED [None]
  - HAEMOGLOBIN DECREASED [None]
  - PLATELET COUNT INCREASED [None]
  - PLEURAL EFFUSION [None]
  - PNEUMONIA [None]
  - STREPTOCOCCAL INFECTION [None]
  - TYMPANIC MEMBRANE HYPERAEMIA [None]
  - WHITE BLOOD CELL COUNT INCREASED [None]
